FAERS Safety Report 6736485-5 (Version None)
Quarter: 2010Q2

REPORT INFORMATION
  Report Type: 
  Country: None (occurrence: None)
  Receive Date: 20100521
  Receipt Date: 20100518
  Transmission Date: 20101027
  Serious: Yes (Other)
  Sender: FDA-Public Use
  Company Number: US-ELI_LILLY_AND_COMPANY-US201005005273

PATIENT
  Age: 64 Year
  Sex: Female

DRUGS (1)
  1. HUMAN INSULIN (RDNA ORIGIN) [Suspect]

REACTIONS (5)
  - BLOOD GLUCOSE INCREASED [None]
  - CEREBROVASCULAR ACCIDENT [None]
  - DYSPNOEA [None]
  - HEART RATE INCREASED [None]
  - JOINT SWELLING [None]
